FAERS Safety Report 18287123 (Version 4)
Quarter: 2021Q1

REPORT INFORMATION
  Report Type: Spontaneous
  Country: PT (occurrence: PT)
  Receive Date: 20200921
  Receipt Date: 20210305
  Transmission Date: 20210419
  Serious: Yes (Hospitalization, Other)
  Sender: FDA-Public Use
  Company Number: PT-CELLTRION INC.-2020PT027977

PATIENT

DRUGS (5)
  1. INFLIXIMAB (UNKNOWN) [Suspect]
     Active Substance: INFLIXIMAB
     Indication: PSORIATIC ARTHROPATHY
     Dosage: UNK
     Route: 065
     Dates: start: 201712
  2. METHOTREXATE. [Concomitant]
     Active Substance: METHOTREXATE
     Dosage: 5 MG, 1/WEEK
     Route: 065
  3. METHOTREXATE. [Concomitant]
     Active Substance: METHOTREXATE
     Dosage: 5 MG/WEEK (REDUCED)
  4. METHOTREXATE. [Concomitant]
     Active Substance: METHOTREXATE
     Dosage: LIMITED DOSE ESCALATION BEYOND 10MG/WEEK
     Route: 065
  5. METHOTREXATE. [Concomitant]
     Active Substance: METHOTREXATE
     Indication: PSORIATIC ARTHROPATHY
     Dosage: 10 MG/WEEK

REACTIONS (4)
  - Hypersensitivity vasculitis [Unknown]
  - Bile duct stenosis [Unknown]
  - Cutaneous vasculitis [Recovered/Resolved]
  - Granulomatous liver disease [Unknown]

NARRATIVE: CASE EVENT DATE: 201901
